FAERS Safety Report 16298165 (Version 2)
Quarter: 2019Q3

REPORT INFORMATION
  Report Type: Spontaneous
  Country: US (occurrence: US)
  Receive Date: 20190510
  Receipt Date: 20190701
  Transmission Date: 20191004
  Serious: No
  Sender: FDA-Public Use
  Company Number: US-ALKERMES INC.-ALK-2019-002009

PATIENT
  Age: 55 Year
  Sex: Male
  Weight: 84.81 kg

DRUGS (2)
  1. SHINGRIX [Concomitant]
     Active Substance: RECOMBINANT VARICELLA ZOSTER VIRUS (VZV) GLYCOPROTEIN E
     Indication: HERPES ZOSTER IMMUNISATION
     Dosage: UNK, ONE TIME DOSE
     Dates: start: 20190411, end: 20190411
  2. VIVITROL [Suspect]
     Active Substance: NALTREXONE
     Indication: ALCOHOLISM
     Dosage: 380 MG, QMO
     Route: 030
     Dates: start: 20190121

REACTIONS (3)
  - Injection site pain [Recovered/Resolved]
  - Musculoskeletal pain [Recovered/Resolved]
  - Injection site reaction [Recovered/Resolved]

NARRATIVE: CASE EVENT DATE: 20190411
